FAERS Safety Report 16497792 (Version 1)
Quarter: 2019Q2

REPORT INFORMATION
  Report Type: Spontaneous
  Country: CA (occurrence: CA)
  Receive Date: 20190628
  Receipt Date: 20190628
  Transmission Date: 20190711
  Serious: Yes (Other)
  Sender: FDA-Public Use
  Company Number: CA-TEVA-2019-CA-1069092

PATIENT
  Age: 40 Year
  Sex: Male

DRUGS (2)
  1. ATOMOXETINE HYDROCHLORIDE 25MG [Suspect]
     Active Substance: ATOMOXETINE HYDROCHLORIDE
     Indication: ATTENTION DEFICIT/HYPERACTIVITY DISORDER
     Route: 048
  2. SUBOXONE [Concomitant]
     Active Substance: BUPRENORPHINE HYDROCHLORIDE\NALOXONE HYDROCHLORIDE
     Indication: DRUG DEPENDENCE
     Route: 065

REACTIONS (5)
  - Poisoning [Recovered/Resolved]
  - Road traffic accident [Recovered/Resolved]
  - Abnormal behaviour [Recovered/Resolved]
  - Amnesia [Recovered/Resolved]
  - Incoherent [Recovered/Resolved]
